FAERS Safety Report 7423249-2 (Version None)
Quarter: 2011Q2

REPORT INFORMATION
  Report Type: 
  Country: None (occurrence: None)
  Receive Date: 20110419
  Receipt Date: 20101210
  Transmission Date: 20111010
  Serious: Yes (Hospitalization, Other)
  Sender: FDA-Public Use
  Company Number: US-BAYER-200937159NA

PATIENT
  Age: 20 Year
  Sex: Female
  Weight: 68.182 kg

DRUGS (26)
  1. CHLOROXYLENOL [Concomitant]
     Indication: NAUSEA
  2. ALTERN [Concomitant]
     Indication: NAUSEA
  3. ALTERN [Concomitant]
     Indication: ABDOMINAL PAIN UPPER
  4. DIPHENHYDRAMINE [Concomitant]
     Indication: VOMITING
  5. ^GREEN LIZARD^ [Concomitant]
     Indication: VOMITING
  6. ^GREEN LIZARD^ [Concomitant]
     Indication: ABDOMINAL PAIN UPPER
  7. LORTAB [Concomitant]
     Dosage: 7.5MG
  8. DIPHENHYDRAMINE [Concomitant]
     Indication: NAUSEA
  9. CHLOROXYLENOL [Concomitant]
     Indication: ABDOMINAL PAIN UPPER
  10. DIPHENHYDRAMINE [Concomitant]
     Indication: ABDOMINAL PAIN UPPER
  11. HYDROCORTISONE W/PARACETAMOL [Concomitant]
     Dosage: 7.5 - 500TAB
  12. VICODIN [Concomitant]
     Dosage: 7.5MG
  13. NEXIUM [Concomitant]
     Indication: DYSPEPSIA
  14. PHENERGAN HCL [Concomitant]
     Indication: NAUSEA
  15. OMEPRAZOLE [Concomitant]
  16. PROMETHAZINE [Concomitant]
     Dosage: 25 MG
  17. PHENERGAN HCL [Concomitant]
     Indication: ABDOMINAL PAIN UPPER
  18. CHLOROXYLENOL [Concomitant]
     Indication: VOMITING
  19. ALTERN [Concomitant]
     Indication: VOMITING
  20. NEXIUM [Concomitant]
  21. PHENERGAN HCL [Concomitant]
     Indication: VOMITING
     Dosage: 20MG
  22. YAZ [Suspect]
     Indication: CONTRACEPTION
     Route: 048
     Dates: start: 20070101, end: 20080615
  23. LEVSIN [Concomitant]
     Indication: ABDOMINAL PAIN UPPER
  24. ^GREEN LIZARD^ [Concomitant]
     Indication: NAUSEA
  25. MACRODANTIN [Concomitant]
  26. NITROFURANT MACRO [Concomitant]
     Dosage: 50 MG

REACTIONS (10)
  - PELVIC PAIN [None]
  - NAUSEA [None]
  - VAGINAL HAEMORRHAGE [None]
  - GASTROOESOPHAGEAL REFLUX DISEASE [None]
  - ABDOMINAL PAIN UPPER [None]
  - VOMITING [None]
  - ABDOMINAL PAIN LOWER [None]
  - CHOLECYSTITIS [None]
  - GASTRITIS [None]
  - OVARIAN CYST [None]
